FAERS Safety Report 9412232 (Version 1)
Quarter: 2013Q2

REPORT INFORMATION
  Report Type: Spontaneous
  Country: JP (occurrence: JP)
  Receive Date: 20130408
  Receipt Date: 20130408
  Transmission Date: 20140414
  Serious: Yes (Other)
  Sender: FDA-Public Use
  Company Number: ENT 2013-0063

PATIENT
  Age: 69 Year
  Sex: Male

DRUGS (1)
  1. COMTAN (ENTACAPONE) [Suspect]
     Indication: PARKINSON^S DISEASE
     Dosage: 600 MG DAILY (3MBQ, 1 IN 1 D)
     Route: 048
     Dates: start: 201303

REACTIONS (2)
  - Parkinson^s disease [None]
  - Dysphagia [None]
